FAERS Safety Report 14055370 (Version 1)
Quarter: 2017Q4

REPORT INFORMATION
  Report Type: Spontaneous
  Country: US (occurrence: None)
  Receive Date: 20171006
  Receipt Date: 20171006
  Transmission Date: 20180321
  Serious: No
  Sender: FDA-Public Use
  Company Number: None

PATIENT
  Sex: Male

DRUGS (1)
  1. 20 MEQ ER POTASSIUM TABLET [Suspect]
     Active Substance: POTASSIUM CHLORIDE

REACTIONS (5)
  - Anxiety [None]
  - Intercepted drug dispensing error [None]
  - Depression [None]
  - Drug dispensing error [None]
  - Product size issue [None]

NARRATIVE: CASE EVENT DATE: 2017
